FAERS Safety Report 9919618 (Version 1)
Quarter: 2014Q1

REPORT INFORMATION
  Report Type: Report from Study
  Country: FR (occurrence: FR)
  Receive Date: 20140224
  Receipt Date: 20140224
  Transmission Date: 20141002
  Serious: Yes (Hospitalization)
  Sender: FDA-Public Use
  Company Number: FR-ROCHE-1350087

PATIENT
  Age: 52 Year
  Sex: Male
  Weight: 145 kg

DRUGS (5)
  1. OBINUTUZUMAB [Suspect]
     Indication: DIFFUSE LARGE B-CELL LYMPHOMA
     Route: 065
     Dates: start: 20130814
  2. CYCLOPHOSPHAMIDE [Concomitant]
     Indication: LYMPHOMA
     Route: 065
     Dates: start: 20130814
  3. DOXORUBICIN [Concomitant]
     Indication: LYMPHOMA
     Route: 065
     Dates: start: 20130814
  4. VINCRISTINE [Concomitant]
     Indication: LYMPHOMA
     Route: 065
     Dates: start: 20130814
  5. PREDNISOLON [Concomitant]
     Indication: LYMPHOMA
     Route: 065
     Dates: start: 20130814

REACTIONS (1)
  - Lung disorder [Recovered/Resolved]
